FAERS Safety Report 5644074-9 (Version None)
Quarter: 2008Q1

REPORT INFORMATION
  Report Type: 
  Country: None (occurrence: None)
  Receive Date: 20080226
  Receipt Date: 20080214
  Transmission Date: 20080703
  Serious: Yes (Hospitalization)
  Sender: FDA-Public Use
  Company Number: B0508398A

PATIENT
  Age: 30 Year
  Sex: Male

DRUGS (2)
  1. EPZICOM [Suspect]
     Indication: DRUG USE FOR UNKNOWN INDICATION
     Dates: start: 20071220
  2. KALETRA [Concomitant]

REACTIONS (3)
  - CARDIAC DISORDER [None]
  - ELECTROCARDIOGRAM ABNORMAL [None]
  - HEART RATE DECREASED [None]
